FAERS Safety Report 7744851-4 (Version None)
Quarter: 2011Q3

REPORT INFORMATION
  Report Type: 
  Country: None (occurrence: None)
  Receive Date: 20110912
  Receipt Date: 20110907
  Transmission Date: 20111222
  Serious: Yes (Hospitalization)
  Sender: FDA-Public Use
  Company Number: FR-MERCK-1109FRA00035

PATIENT
  Age: 66 Year
  Sex: Female
  Weight: 105 kg

DRUGS (3)
  1. INSULIN GLARGINE [Concomitant]
     Indication: TYPE 2 DIABETES MELLITUS
     Route: 065
     Dates: start: 20110101
  2. JANUMET [Suspect]
     Indication: TYPE 2 DIABETES MELLITUS
     Route: 048
     Dates: start: 20100101
  3. JANUMET [Suspect]
     Route: 048
     Dates: start: 20091214, end: 20100204

REACTIONS (2)
  - RENAL FAILURE ACUTE [None]
  - ANURIA [None]
